FAERS Safety Report 9750123 (Version 1)
Quarter: 2013Q4

REPORT INFORMATION
  Report Type: Spontaneous
  Country: US (occurrence: US)
  Receive Date: 20131212
  Receipt Date: 20131212
  Transmission Date: 20140711
  Serious: No
  Sender: FDA-Public Use
  Company Number: US-GILEAD-US-CVT-090505

PATIENT
  Age: 70 Year
  Sex: Female

DRUGS (4)
  1. RANEXA [Suspect]
     Indication: ANGINA PECTORIS
     Route: 048
     Dates: start: 20090728, end: 20090815
  2. PROBENECID [Concomitant]
  3. COREG [Concomitant]
  4. COUMADIN [Concomitant]

REACTIONS (2)
  - Arthralgia [Not Recovered/Not Resolved]
  - Myalgia [Not Recovered/Not Resolved]
